FAERS Safety Report 6845773-3 (Version None)
Quarter: 2010Q3

REPORT INFORMATION
  Report Type: 
  Country: None (occurrence: None)
  Receive Date: 20100715
  Receipt Date: 20071018
  Transmission Date: 20110219
  Serious: No
  Sender: FDA-Public Use
  Company Number: US-PFIZER INC-2007068945

PATIENT
  Sex: Female
  Weight: 60.454 kg

DRUGS (2)
  1. CHANTIX [Suspect]
     Indication: SMOKING CESSATION THERAPY
     Route: 048
     Dates: start: 20070701
  2. OTHER HYPNOTICS AND SEDATIVES [Concomitant]
     Dates: start: 20070101, end: 20070101

REACTIONS (1)
  - SLEEP DISORDER [None]
